FAERS Safety Report 6550357-0 (Version None)
Quarter: 2010Q1

REPORT INFORMATION
  Report Type: 
  Country: None (occurrence: None)
  Receive Date: 20100125
  Receipt Date: 20100115
  Transmission Date: 20100710
  Serious: Yes (Death, Other)
  Sender: FDA-Public Use
  Company Number: US-JNJFOC-20100107087

PATIENT
  Age: 49 Year
  Sex: Male

DRUGS (11)
  1. TOPIRAMATE [Suspect]
     Indication: SUICIDE ATTEMPT
     Route: 048
  2. DIPHENHYDRAMINE [Suspect]
     Route: 048
  3. DIPHENHYDRAMINE [Suspect]
     Indication: SUICIDE ATTEMPT
     Route: 048
  4. QUETIAPINE [Suspect]
     Indication: SUICIDE ATTEMPT
     Route: 048
  5. BETA BLOCKERS, NOS [Suspect]
     Indication: SUICIDE ATTEMPT
     Route: 048
  6. BUPROPION [Suspect]
     Indication: SUICIDE ATTEMPT
     Route: 048
  7. LISINOPRIL [Suspect]
     Indication: SUICIDE ATTEMPT
     Route: 048
  8. TIZANIDINE HCL [Suspect]
     Indication: SUICIDE ATTEMPT
     Route: 048
  9. MIRTAZAPINE [Suspect]
     Indication: SUICIDE ATTEMPT
     Route: 048
  10. TAMSULOSIN HCL [Suspect]
     Indication: SUICIDE ATTEMPT
     Route: 048
  11. COCAINE [Suspect]
     Indication: SUICIDE ATTEMPT
     Route: 048

REACTIONS (1)
  - DRUG TOXICITY [None]
